FAERS Safety Report 9870205 (Version 1)
Quarter: 2014Q1

REPORT INFORMATION
  Report Type: Spontaneous
  Country: US (occurrence: None)
  Receive Date: 20140203
  Receipt Date: 20140203
  Transmission Date: 20141002
  Serious: Yes (Death)
  Sender: FDA-Public Use
  Company Number: NSR_01324_2014

PATIENT
  Age: 44 Year
  Sex: Female

DRUGS (4)
  1. BACLOFEN [Suspect]
     Indication: PRODUCT USED FOR UNKNOWN INDICATION
     Dosage: DF UNKNOWN UNTIL NOT CONTINUING
  2. FENTANYL [Suspect]
     Indication: PRODUCT USED FOR UNKNOWN INDICATION
     Dosage: DF UNKNOWN UNTIL NOT CONTINUING
  3. MORPHINE [Suspect]
     Indication: PRODUCT USED FOR UNKNOWN INDICATION
     Dosage: DF UNKNOWN UNTIL NOT CONTINUING
  4. ALPRAZOLAM [Suspect]
     Indication: PRODUCT USED FOR UNKNOWN INDICATION
     Dosage: DF UNKNOWN UNTIL NOT CONTINUING

REACTIONS (3)
  - Poisoning [None]
  - Respiratory arrest [None]
  - Cardiac arrest [None]
